FAERS Safety Report 12584432 (Version 1)
Quarter: 2016Q3

REPORT INFORMATION
  Report Type: Report from Study
  Country: BR (occurrence: BR)
  Receive Date: 20160722
  Receipt Date: 20160722
  Transmission Date: 20161109
  Serious: Yes (Other)
  Sender: FDA-Public Use
  Company Number: BR-ABBVIE-16P-020-1683031-00

PATIENT
  Sex: Female
  Weight: 51 kg

DRUGS (1)
  1. SYNTHROID [Suspect]
     Active Substance: LEVOTHYROXINE SODIUM
     Indication: PRODUCT USED FOR UNKNOWN INDICATION
     Dosage: 50 MCG (ONCE A DAY, FASTING)
     Route: 048
     Dates: start: 1986

REACTIONS (1)
  - Thyroid operation [Unknown]

NARRATIVE: CASE EVENT DATE: 1986
